FAERS Safety Report 5851753-7 (Version None)
Quarter: 2008Q3

REPORT INFORMATION
  Report Type: 
  Country: None (occurrence: None)
  Receive Date: 20080820
  Receipt Date: 20080818
  Transmission Date: 20090109
  Serious: Yes (Other)
  Sender: FDA-Public Use
  Company Number: PHHY2008DE13636

PATIENT
  Sex: Male

DRUGS (3)
  1. RASILEZ [Suspect]
     Indication: HYPERTENSION
     Dosage: UNK
  2. PROCORALAN [Concomitant]
  3. LIPOCHOL [Concomitant]

REACTIONS (3)
  - MUCOSAL DRYNESS [None]
  - MUCOUS MEMBRANE DISORDER [None]
  - SJOGREN'S SYNDROME [None]
